FAERS Safety Report 7022219-6 (Version None)
Quarter: 2010Q3

REPORT INFORMATION
  Report Type: 
  Country: None (occurrence: None)
  Receive Date: 20100930
  Receipt Date: 20090803
  Transmission Date: 20110219
  Serious: Yes (Hospitalization)
  Sender: FDA-Public Use
  Company Number: FR-SANOFI-AVENTIS-200912894FR

PATIENT
  Age: 58 Year
  Sex: Female

DRUGS (12)
  1. LOVENOX [Suspect]
     Indication: POSTOPERATIVE CARE
     Route: 058
     Dates: start: 20090421
  2. LOVENOX [Suspect]
     Route: 058
     Dates: start: 20090421
  3. ACETAMINOPHEN W/ PROPOXYPHENE HCL [Suspect]
     Dosage: DOSE UNIT: 430 MG
     Route: 048
     Dates: start: 20090422
  4. ACETAMINOPHEN W/ PROPOXYPHENE HCL [Suspect]
     Dosage: DOSE UNIT: 430 MG DOSE:2 UNIT(S)
     Route: 048
     Dates: start: 20090425
  5. ISOFLURANE [Concomitant]
     Route: 055
     Dates: start: 20090422, end: 20090422
  6. MARCAINE /NET/ [Concomitant]
     Route: 037
     Dates: start: 20090421
  7. XANAX [Concomitant]
     Indication: PRODUCT USED FOR UNKNOWN INDICATION
     Route: 048
     Dates: start: 20090421, end: 20090421
  8. PARACETAMOL [Concomitant]
     Indication: POSTOPERATIVE CARE
     Route: 042
     Dates: start: 20090422
  9. ACUPAN [Concomitant]
     Indication: POSTOPERATIVE CARE
     Dates: start: 20090422
  10. MORPHINE [Concomitant]
     Indication: POSTOPERATIVE CARE
     Dates: start: 20090422
  11. ESTROGEL [Concomitant]
     Indication: PRODUCT USED FOR UNKNOWN INDICATION
     Route: 061
  12. UTROGESTAN [Concomitant]
     Indication: PRODUCT USED FOR UNKNOWN INDICATION

REACTIONS (1)
  - HEPATITIS ACUTE [None]
